FAERS Safety Report 5333973-3 (Version None)
Quarter: 2007Q2

REPORT INFORMATION
  Report Type: 
  Country: None (occurrence: None)
  Receive Date: 20070524
  Receipt Date: 20070512
  Transmission Date: 20071010
  Serious: Yes (Other)
  Sender: FDA-Public Use
  Company Number: US-PFIZER INC-2007025845

PATIENT
  Sex: Male
  Weight: 88.5 kg

DRUGS (6)
  1. CELEBREX [Suspect]
     Indication: EXOSTOSIS
     Route: 048
     Dates: start: 20060101, end: 20070301
  2. CELEBREX [Suspect]
     Indication: SPINAL COLUMN STENOSIS
  3. VYTORIN [Concomitant]
  4. LISINOPRIL [Concomitant]
  5. NEXIUM [Concomitant]
  6. DOXEPIN HCL [Concomitant]

REACTIONS (3)
  - DRUG INEFFECTIVE [None]
  - INTERVERTEBRAL DISC PROTRUSION [None]
  - NERVE COMPRESSION [None]
